FAERS Safety Report 8419972-3 (Version None)
Quarter: 2012Q2

REPORT INFORMATION
  Report Type: 
  Country: None (occurrence: None)
  Receive Date: 20120607
  Receipt Date: 20120601
  Transmission Date: 20120825
  Serious: Yes (Life-Threatening, Hospitalization, Other)
  Sender: FDA-Public Use
  Company Number: DE-ROCHE-1070142

PATIENT

DRUGS (9)
  1. LUCENTIS [Suspect]
     Indication: AGE-RELATED MACULAR DEGENERATION
     Route: 050
     Dates: start: 20120327
  2. AQUAPHOR 40 [Concomitant]
  3. MARCUMAR [Concomitant]
  4. LASIX [Concomitant]
  5. CANDESARTAN CILEXETIL [Concomitant]
  6. DIPYRONE TAB [Concomitant]
  7. BENOXINATE HYDROCHLORIDE [Concomitant]
     Dates: start: 20120327
  8. CARVEDILOL [Concomitant]
  9. ALLOPURINOL [Concomitant]

REACTIONS (1)
  - CEREBROVASCULAR ACCIDENT [None]
